FAERS Safety Report 10711959 (Version 1)
Quarter: 2015Q1

REPORT INFORMATION
  Report Type: Spontaneous
  Country: US (occurrence: US)
  Receive Date: 20150114
  Receipt Date: 20150114
  Transmission Date: 20150721
  Serious: No
  Sender: FDA-Public Use
  Company Number: US-GLAXOSMITHKLINE-US2014GSK046737

PATIENT
  Age: 50 Year
  Sex: Female

DRUGS (4)
  1. ADVAIR DISKUS [Suspect]
     Active Substance: FLUTICASONE PROPIONATE\SALMETEROL XINAFOATE
     Dosage: UNK, U
     Route: 065
     Dates: start: 1998, end: 201410
  2. PREDNISONE. [Concomitant]
     Active Substance: PREDNISONE
  3. NEURONTIN [Concomitant]
     Active Substance: GABAPENTIN
  4. VENTOLIN [Suspect]
     Active Substance: ALBUTEROL SULFATE
     Indication: ASTHMA
     Dosage: 2 PUFF(S), PRN
     Route: 055
     Dates: start: 1998

REACTIONS (4)
  - Drug dose omission [Unknown]
  - Wheezing [Not Recovered/Not Resolved]
  - Expired product administered [Not Recovered/Not Resolved]
  - Lung disorder [Not Recovered/Not Resolved]

NARRATIVE: CASE EVENT DATE: 201410
